FAERS Safety Report 19511251 (Version 2)
Quarter: 2021Q3

REPORT INFORMATION
  Report Type: Report from Study
  Country: US (occurrence: US)
  Receive Date: 20210709
  Receipt Date: 20210806
  Transmission Date: 20211014
  Serious: Yes (Death)
  Sender: FDA-Public Use
  Company Number: NVSC2021US153686

PATIENT
  Sex: Male
  Weight: 70 kg

DRUGS (2)
  1. AFINITOR [Suspect]
     Active Substance: EVEROLIMUS
     Indication: RENAL CANCER
     Dosage: 5 MG, QD
     Route: 048
     Dates: start: 20210112
  2. LENVATINIB [Concomitant]
     Active Substance: LENVATINIB
     Indication: RENAL CANCER
     Dosage: 120 MG, QD
     Route: 048
     Dates: start: 20210112

REACTIONS (3)
  - Chronic kidney disease [Fatal]
  - Renal cancer [Fatal]
  - Diarrhoea [Recovered/Resolved]
